FAERS Safety Report 4440554-2 (Version None)
Quarter: 2004Q3

REPORT INFORMATION
  Report Type: 
  Country: None (occurrence: None)
  Receive Date: 20040903
  Receipt Date: 20040731
  Transmission Date: 20050211
  Serious: Yes (Hospitalization)
  Sender: FDA-Public Use
  Company Number: JP-ROCHE-376200

PATIENT
  Age: 57 Year
  Sex: Male
  Weight: 64.8 kg

DRUGS (2)
  1. PEG-INTERFERON A-2A (RO 25-8310) [Suspect]
     Route: 058
     Dates: start: 20030519, end: 20040410
  2. RIBAVIRIN [Suspect]
     Dosage: TAKEN DAILY.
     Route: 048
     Dates: start: 20030519, end: 20040418

REACTIONS (2)
  - ILEUS [None]
  - PERITONITIS [None]
